FAERS Safety Report 10229770 (Version 1)
Quarter: 2014Q2

REPORT INFORMATION
  Report Type: Report from Study
  Country: CA (occurrence: CA)
  Receive Date: 20140611
  Receipt Date: 20140611
  Transmission Date: 20141212
  Serious: Yes (Death, Hospitalization)
  Sender: FDA-Public Use
  Company Number: PHHY2014CA071550

PATIENT
  Age: 62 Year
  Sex: Male

DRUGS (1)
  1. ZOMETA [Suspect]
     Indication: COLON CANCER METASTATIC
     Dosage: 4 MG, EVERY 4 WEEKS
     Route: 042
     Dates: start: 20140319

REACTIONS (1)
  - Death [Fatal]
